FAERS Safety Report 8435755-2 (Version None)
Quarter: 2012Q2

REPORT INFORMATION
  Report Type: 
  Country: None (occurrence: None)
  Receive Date: 20120608
  Receipt Date: 20120529
  Transmission Date: 20120825
  Serious: Yes (Other)
  Sender: FDA-Public Use
  Company Number: MT-1191756

PATIENT
  Sex: Female

DRUGS (3)
  1. TOBRADEX [Suspect]
     Indication: CONJUNCTIVITIS
     Dosage: (2 GTT QID OPHTHALMIC)
     Route: 047
     Dates: start: 20120409
  2. CYCLOSPORINE [Concomitant]
  3. ETANERCEPT [Concomitant]

REACTIONS (4)
  - AQUEOUS HUMOUR LEAKAGE [None]
  - CORNEAL PERFORATION [None]
  - OCULAR HYPERAEMIA [None]
  - EYE PAIN [None]
